FAERS Safety Report 4436218-1 (Version None)
Quarter: 2004Q3

REPORT INFORMATION
  Report Type: 
  Country: None (occurrence: None)
  Receive Date: 20040830
  Receipt Date: 20040526
  Transmission Date: 20050211
  Serious: Yes (Other)
  Sender: FDA-Public Use
  Company Number: US-BRISTOL-MYERS SQUIBB COMPANY-12597142

PATIENT
  Age: 61 Year
  Sex: Female
  Weight: 56 kg

DRUGS (6)
  1. ERBITUX [Suspect]
     Indication: COLORECTAL CANCER
     Route: 042
     Dates: start: 20040519, end: 20040519
  2. BENADRYL [Concomitant]
     Indication: PREMEDICATION
     Route: 042
     Dates: start: 20040519, end: 20040519
  3. TYLENOL [Concomitant]
     Indication: PREMEDICATION
     Route: 048
     Dates: start: 20040519, end: 20040519
  4. CAMPTOSAR [Concomitant]
     Route: 042
  5. LEUCOVORIN [Concomitant]
     Route: 042
  6. FLUOROURACIL [Concomitant]
     Route: 042

REACTIONS (1)
  - RASH [None]
